FAERS Safety Report 8346176-5 (Version None)
Quarter: 2012Q2

REPORT INFORMATION
  Report Type: 
  Country: None (occurrence: None)
  Receive Date: 20120509
  Receipt Date: 20120505
  Transmission Date: 20120825
  Serious: Yes (Other)
  Sender: FDA-Public Use
  Company Number: IN-ACCORD-013252

PATIENT
  Age: 35 Year
  Sex: Female

DRUGS (1)
  1. TOPIRAMATE [Suspect]
     Indication: PROPHYLAXIS
     Dosage: AT NIGHT

REACTIONS (2)
  - SOMNAMBULISM [None]
  - OFF LABEL USE [None]
